FAERS Safety Report 13667783 (Version 1)
Quarter: 2017Q2

REPORT INFORMATION
  Report Type: Report from Study
  Country: FR (occurrence: FR)
  Receive Date: 20170620
  Receipt Date: 20170620
  Transmission Date: 20170830
  Serious: Yes (Hospitalization)
  Sender: FDA-Public Use
  Company Number: FR-SHIRE-FR201711214

PATIENT
  Age: 51 Year
  Sex: Male
  Weight: 53.47 kg

DRUGS (8)
  1. UVEDOSE [Concomitant]
     Active Substance: CHOLECALCIFEROL
     Indication: VITAMIN D DEFICIENCY
     Dosage: 100000 IU, OTHER
     Route: 048
     Dates: start: 20151126
  2. DOLIPRANE [Concomitant]
     Active Substance: ACETAMINOPHEN
     Indication: PAIN
     Dosage: 1000 MG, AS REQ^D
     Route: 048
     Dates: start: 20160415
  3. TEDUGLUTIDE [Suspect]
     Active Substance: TEDUGLUTIDE
     Dosage: 2.65 MG, 1X/DAY:QD
     Route: 058
     Dates: start: 20160712, end: 20160725
  4. TRAMADOL. [Concomitant]
     Active Substance: TRAMADOL
     Indication: PAIN
     Dosage: 100 MG, 3X/DAY:TID
     Route: 048
     Dates: start: 20160415
  5. TEDUGLUTIDE [Suspect]
     Active Substance: TEDUGLUTIDE
     Indication: SHORT-BOWEL SYNDROME
     Dosage: 2.55 MG, 1X/DAY:QD
     Route: 058
     Dates: start: 20160823, end: 20170516
  6. TEDUGLUTIDE [Suspect]
     Active Substance: TEDUGLUTIDE
     Dosage: 2.45 MG, 1X/DAY:QD
     Route: 058
     Dates: start: 20160627, end: 20160711
  7. TEDUGLUTIDE [Suspect]
     Active Substance: TEDUGLUTIDE
     Dosage: 2.8 MG, 1X/DAY:QD
     Route: 058
     Dates: start: 20160726, end: 20160822
  8. TEDUGLUTIDE [Suspect]
     Active Substance: TEDUGLUTIDE
     Dosage: 2.0 MG, 1X/DAY:QD
     Route: 058
     Dates: start: 20170517

REACTIONS (3)
  - Weight decreased [Recovered/Resolved]
  - Vomiting [Not Recovered/Not Resolved]
  - Nausea [Not Recovered/Not Resolved]

NARRATIVE: CASE EVENT DATE: 201705
